FAERS Safety Report 7653982 (Version 7)
Quarter: 2013Q2

REPORT INFORMATION
  Report Type: Spontaneous
  Country: JP (occurrence: JP)
  Receive Date: 20101102
  Receipt Date: 20130515
  Transmission Date: 20140414
  Serious: Yes (Death, Hospitalization, Other)
  Sender: FDA-Public Use
  Company Number: PHHY2010JP72877

PATIENT
  Sex: Female

DRUGS (5)
  1. NEORAL [Suspect]
     Indication: RENAL TRANSPLANT
     Dosage: 250 MG, UNK
     Route: 048
     Dates: start: 200811
  2. SIMULECT [Suspect]
     Indication: RENAL TRANSPLANT
     Dosage: 20 MG
     Route: 042
     Dates: start: 200811, end: 200811
  3. CELLCEPT [Suspect]
     Indication: RENAL TRANSPLANT
     Dosage: 1 GM DAILY
     Route: 048
     Dates: start: 200811
  4. STEROIDS NOS [Concomitant]
     Indication: RENAL TRANSPLANT
     Dosage: 15 MG DAILY
     Route: 048
     Dates: start: 200811
  5. ADRENAL HORMONE PREPARATIONS [Concomitant]

REACTIONS (12)
  - Kidney transplant rejection [Fatal]
  - Renal impairment [Fatal]
  - Respiratory failure [Recovering/Resolving]
  - Acute respiratory distress syndrome [Recovering/Resolving]
  - Dermatitis bullous [Unknown]
  - Varicella zoster pneumonia [Recovering/Resolving]
  - Oral candidiasis [Recovering/Resolving]
  - Oral disorder [Unknown]
  - Vasculitis [Unknown]
  - Infection [Unknown]
  - Blister rupture [Unknown]
  - Skin ulcer [Unknown]
